FAERS Safety Report 10625388 (Version 1)
Quarter: 2014Q4

REPORT INFORMATION
  Report Type: Spontaneous
  Country: PT (occurrence: None)
  Receive Date: 20141202
  Receipt Date: 20141202
  Transmission Date: 20150529
  Serious: Yes (Other)
  Sender: FDA-Public Use
  Company Number: 2014AMD00128

PATIENT
  Age: 55 Year
  Sex: Male

DRUGS (4)
  1. PROPOFOL (PROPOFOL) [Suspect]
     Active Substance: PROPOFOL
  2. SEVOFLURANE (SEVOFLURANE) (SEVOFLURANE) [Suspect]
     Active Substance: SEVOFLURANE
  3. EPINEPHRINE (EPINEPHRINE) INTRAVENOUS [Suspect]
     Active Substance: EPINEPHRINE HYDROCHLORIDE
  4. REMIFENTANIL (REMIFENTANIL) [Suspect]
     Active Substance: REMIFENTANIL

REACTIONS (4)
  - Tachycardia [None]
  - Hypocalcaemia [None]
  - Hypertensive crisis [None]
  - Wrong drug administered [None]
